FAERS Safety Report 7164784-4 (Version None)
Quarter: 2010Q4

REPORT INFORMATION
  Report Type: 
  Country: None (occurrence: None)
  Receive Date: 20101215
  Receipt Date: 20101202
  Transmission Date: 20110411
  Serious: Yes (Other)
  Sender: FDA-Public Use
  Company Number: GB-WATSON-2010-15766

PATIENT
  Age: 32 Year
  Sex: Female

DRUGS (2)
  1. SERTRALINE HYDROCHLORIDE [Suspect]
     Indication: DEPRESSION
     Dosage: 50 MG, DURING PREGNANCY
     Route: 048
     Dates: start: 20101027
  2. SERTRALINE HYDROCHLORIDE [Suspect]
     Dosage: 100 MG, PRENATAL
     Route: 048
     Dates: end: 20101027

REACTIONS (1)
  - ABORTION INDUCED [None]
